FAERS Safety Report 13012490 (Version 1)
Quarter: 2016Q4

REPORT INFORMATION
  Report Type: Not Available
  Country: None (occurrence: US)
  Receive Date: 20161209
  Receipt Date: 20161209
  Transmission Date: 20170207
  Serious: No
  Sender: FDA-Public Use
  Company Number: US-AKORN-39371

PATIENT
  Sex: Male

DRUGS (1)
  1. DORZOLAMIDE HCI-TIMOLOL MALEATE SOLUTION [Suspect]
     Active Substance: DORZOLAMIDE HYDROCHLORIDE\TIMOLOL MALEATE

REACTIONS (1)
  - Eye irritation [Recovered/Resolved]
